FAERS Safety Report 23401173 (Version 1)
Quarter: 2024Q1

REPORT INFORMATION
  Report Type: Spontaneous
  Country: US (occurrence: US)
  Receive Date: 20240115
  Receipt Date: 20240115
  Transmission Date: 20240410
  Serious: Yes (Hospitalization)
  Sender: FDA-Public Use
  Company Number: US-BRISTOL-MYERS SQUIBB COMPANY-2024-006395

PATIENT
  Age: 74 Year
  Sex: Male
  Weight: 62.6 kg

DRUGS (1)
  1. POMALYST [Suspect]
     Active Substance: POMALIDOMIDE
     Indication: Plasma cell myeloma
     Dosage: 21D ON 7D OFF
     Route: 048

REACTIONS (3)
  - COVID-19 [Unknown]
  - Asthenia [Unknown]
  - Presyncope [Unknown]

NARRATIVE: CASE EVENT DATE: 20240110
